FAERS Safety Report 9450557 (Version 2)
Quarter: 2013Q3

REPORT INFORMATION
  Report Type: Spontaneous
  Country: US (occurrence: US)
  Receive Date: 20130809
  Receipt Date: 20130913
  Transmission Date: 20140515
  Serious: Yes (Hospitalization)
  Sender: FDA-Public Use
  Company Number: US-GLAXOSMITHKLINE-A1036616A

PATIENT
  Age: 32 Year
  Sex: Female

DRUGS (3)
  1. VENTOLIN HFA [Suspect]
     Indication: ASTHMA
     Route: 055
     Dates: start: 2011
  2. TYLENOL [Concomitant]
  3. IBUPROFEN [Concomitant]

REACTIONS (3)
  - Asthma [Recovered/Resolved]
  - Dyspnoea [Recovered/Resolved]
  - Product quality issue [Unknown]
